FAERS Safety Report 16413630 (Version 1)
Quarter: 2019Q2

REPORT INFORMATION
  Report Type: Spontaneous
  Country: NL (occurrence: NL)
  Receive Date: 20190611
  Receipt Date: 20190611
  Transmission Date: 20190711
  Serious: Yes (Hospitalization)
  Sender: FDA-Public Use
  Company Number: NL-TEVA-2019-NL-1060827

PATIENT
  Age: 79 Year
  Sex: Female
  Weight: 85 kg

DRUGS (5)
  1. DILTIAZEM. [Concomitant]
     Active Substance: DILTIAZEM
  2. VITAMIN SUPPLEMENTATION [Concomitant]
  3. ISOSORBIDEMONONITRAAT [Concomitant]
  4. ACETOSALICYL [Concomitant]
  5. NAPROXEN TABLET 250 MG (MILLIGRAM) [Suspect]
     Active Substance: NAPROXEN
     Indication: ROSACEA
     Dosage: 2 X 1 TABLET 250 MILLIGRAMS
     Dates: start: 20190402, end: 20190404

REACTIONS (1)
  - Diverticulitis [Recovered/Resolved]

NARRATIVE: CASE EVENT DATE: 20190402
